FAERS Safety Report 5020540-4 (Version None)
Quarter: 2006Q2

REPORT INFORMATION
  Report Type: 
  Country: None (occurrence: None)
  Receive Date: 20060607
  Receipt Date: 20060607
  Transmission Date: 20061013
  Serious: Yes (Hospitalization)
  Sender: FDA-Public Use
  Company Number: None

PATIENT
  Sex: Female
  Weight: 54 kg

DRUGS (2)
  1. RAPAMYCIN [Suspect]
     Indication: OVARIAN CANCER METASTATIC
     Dosage: 5 MG WEEKLY PO
     Route: 048
     Dates: start: 20060104, end: 20060426
  2. KETOCONAZOLE [Suspect]
     Dosage: 200 MG BID X1, QD X3 PO
     Route: 048
     Dates: start: 20060110, end: 20060502

REACTIONS (4)
  - DEHYDRATION [None]
  - DISEASE PROGRESSION [None]
  - HYDRONEPHROSIS [None]
  - RENAL FAILURE ACUTE [None]
